FAERS Safety Report 4398177-X (Version None)
Quarter: 2004Q3

REPORT INFORMATION
  Report Type: 
  Country: None (occurrence: None)
  Receive Date: 20040713
  Receipt Date: 20040629
  Transmission Date: 20050211
  Serious: Yes (Hospitalization)
  Sender: FDA-Public Use
  Company Number: 205553

PATIENT
  Age: 73 Year
  Sex: Female

DRUGS (13)
  1. MABTHERA (RITUXIMAB) CONC FOR SOLUTION FOR INFUSION [Suspect]
     Indication: NON-HODGKIN'S LYMPHOMA
     Dosage: INTRAVENOUS
     Route: 042
  2. CYCLOPHOSPHAMIDE [Suspect]
     Indication: NON-HODGKIN'S LYMPHOMA
     Dosage: INTRAVENOUS
     Route: 042
  3. DOXORUBICIN HCL [Suspect]
     Indication: NON-HODGKIN'S LYMPHOMA
     Dosage: INTRAVENOUS
     Route: 042
  4. VINCRISTINE SULFATE [Suspect]
     Indication: NON-HODGKIN'S LYMPHOMA
     Dosage: INTRAVENOUS
     Route: 042
  5. PREDNISONE TAB [Suspect]
     Indication: NON-HODGKIN'S LYMPHOMA
     Dosage: INTRAVENOUS
     Route: 042
  6. DIGITOXIN TAB [Concomitant]
  7. ALLOPURINOL [Concomitant]
  8. TRIAMTERENE/HYDROCHLOROTHIAZIDE (HYDROCHLOROTHIAZIDE, TRIAMTERENE) [Concomitant]
  9. THIAMAZOLE (METHIMAZOLE) [Concomitant]
  10. COTRIM [Concomitant]
  11. OMEPRAZOLE [Concomitant]
  12. AMPHOTERICIN B [Concomitant]
  13. TOPROL (METOPROLOL SUCCINATE) [Concomitant]

REACTIONS (7)
  - AORTIC VALVE INCOMPETENCE [None]
  - AORTIC VALVE STENOSIS [None]
  - ARRHYTHMIA [None]
  - ATRIAL FIBRILLATION [None]
  - HYPOTENSION [None]
  - SYNCOPE [None]
  - WHITE BLOOD CELL COUNT INCREASED [None]
